FAERS Safety Report 25788425 (Version 2)
Quarter: 2025Q4

REPORT INFORMATION
  Report Type: Spontaneous
  Country: EU (occurrence: EU)
  Receive Date: 20250910
  Receipt Date: 20251027
  Transmission Date: 20260117
  Serious: Yes (Other)
  Sender: ELI LILLY AND COMPANY
  Company Number: EU-SANDOZ-SDZ2025AT063292

PATIENT
  Age: 49 Year
  Sex: Male

DRUGS (22)
  1. ALIMTA [Suspect]
     Active Substance: PEMETREXED DISODIUM
     Indication: Non-small cell lung cancer
     Dosage: UNK UNK, UNKNOWN
     Route: 065
     Dates: start: 20250620
  2. ALIMTA [Suspect]
     Active Substance: PEMETREXED DISODIUM
     Dosage: UNK UNK, UNKNOWN
     Route: 065
     Dates: start: 20250530
  3. ZIEXTENZO [Suspect]
     Active Substance: PEGFILGRASTIM-BMEZ
     Indication: Non-small cell lung cancer
     Dosage: UNK UNK, UNKNOWN
     Route: 065
     Dates: start: 20250601
  4. ZIEXTENZO [Suspect]
     Active Substance: PEGFILGRASTIM-BMEZ
     Dosage: UNK UNK, UNKNOWN
     Route: 065
     Dates: start: 20250614
  5. CARBOPLATIN [Suspect]
     Active Substance: CARBOPLATIN
     Indication: Non-small cell lung cancer
     Dosage: UNK UNK, UNKNOWN
     Route: 065
     Dates: start: 20250530
  6. CARBOPLATIN [Suspect]
     Active Substance: CARBOPLATIN
     Dosage: UNK UNK, UNKNOWN
     Route: 065
     Dates: start: 20250620
  7. CARBOPLATIN [Suspect]
     Active Substance: CARBOPLATIN
     Dosage: UNK UNK, UNKNOWN
     Route: 065
     Dates: start: 20250711
  8. AMIVANTAMAB [Suspect]
     Active Substance: AMIVANTAMAB
     Indication: Non-small cell lung cancer
     Dosage: UNK UNK, UNKNOWN
     Route: 065
     Dates: start: 20250530
  9. ELIQUIS [Suspect]
     Active Substance: APIXABAN
     Indication: Product used for unknown indication
     Dosage: 2.5 MG, DAILY
     Route: 065
     Dates: start: 20250620
  10. CISPLATIN [Suspect]
     Active Substance: CISPLATIN
     Indication: Product used for unknown indication
     Dosage: UNK, UNKNOWN
     Route: 065
     Dates: start: 20250601
  11. CISPLATIN [Suspect]
     Active Substance: CISPLATIN
     Dosage: UNK, UNKNOWN
     Route: 065
     Dates: start: 20250620
  12. MINOSTAD [Concomitant]
     Indication: Product used for unknown indication
     Dosage: 50 MG, DAILY
  13. PREDNISOLONE [Concomitant]
     Active Substance: PREDNISOLONE
     Indication: Product used for unknown indication
     Dosage: 25 MG, DAILY
     Dates: start: 20250731
  14. ERYCYTOL DEPOT [Concomitant]
     Indication: Product used for unknown indication
     Dosage: 1 MG, OTHER (EVERY 3 MONTHS)
     Dates: start: 20250621
  15. CALVITA D [Concomitant]
     Indication: Product used for unknown indication
     Dosage: UNK, DAILY
  16. KALIORAL [CITRIC ACID;POTASSIUM BICARBONATE;P [Concomitant]
     Indication: Product used for unknown indication
     Dosage: UNK, DAILY
  17. FOLIC ACID [Concomitant]
     Active Substance: FOLIC ACID
     Indication: Product used for unknown indication
     Dosage: 0.4 MG, DAILY
  18. INOTYOL [CALCIUM CARBONATE;HAMAMELIS VIRGINIA [Concomitant]
     Indication: Product used for unknown indication
     Dosage: 50 G, DAILY
  19. HYALURONATE SODIUM\TREHALOSE [Concomitant]
     Active Substance: HYALURONATE SODIUM\TREHALOSE
     Indication: Product used for unknown indication
  20. FLOXAL [Concomitant]
     Active Substance: OFLOXACIN
     Indication: Product used for unknown indication
  21. ONDANSETRON HYDROCHLORIDE [Concomitant]
     Active Substance: ONDANSETRON HYDROCHLORIDE
     Indication: Product used for unknown indication
     Dosage: 8 MG, PRN
  22. MAGNESIUM CARBONATE\MAGNESIUM OXIDE [Concomitant]
     Active Substance: MAGNESIUM CARBONATE\MAGNESIUM OXIDE
     Indication: Product used for unknown indication
     Dosage: UNK, DAILY (6.1 G, QD (WITH CONSTIPATION TENDENCY) (IF REQUIRED: MAX. 1X DAILY)

REACTIONS (6)
  - Skin reaction [Recovering/Resolving]
  - Target skin lesion [Recovering/Resolving]
  - Renal injury [Unknown]
  - Skin haemorrhage [Recovered/Resolved]
  - Inflammation [Unknown]
  - Rash [Recovering/Resolving]

NARRATIVE: CASE EVENT DATE: 20250101
